FAERS Safety Report 7103786-0 (Version None)
Quarter: 2010Q4

REPORT INFORMATION
  Report Type: 
  Country: None (occurrence: None)
  Receive Date: 20101115
  Receipt Date: 20101108
  Transmission Date: 20110411
  Serious: Yes (Life-Threatening, Hospitalization)
  Sender: FDA-Public Use
  Company Number: RU-AMGEN-RUSSP2010001241

PATIENT

DRUGS (10)
  1. NPLATE [Suspect]
     Indication: IDIOPATHIC THROMBOCYTOPENIC PURPURA
     Dosage: 1
     Route: 058
     Dates: start: 20100819, end: 20101101
  2. NPLATE [Suspect]
     Dosage: 1 A?G/KG, UNK
     Route: 058
     Dates: start: 20100916
  3. NPLATE [Suspect]
     Dosage: 2 A?G/KG, UNK
     Dates: start: 20101008
  4. NPLATE [Suspect]
     Dosage: 3 A?G/KG, UNK
     Route: 058
     Dates: start: 20101014, end: 20101101
  5. PREDNIZOLON [Concomitant]
     Indication: IDIOPATHIC THROMBOCYTOPENIC PURPURA
     Dosage: 170 MG, QD
     Dates: start: 20100816, end: 20100929
  6. PREDNIZOLON [Concomitant]
     Dosage: 120
     Dates: start: 20100816, end: 20100929
  7. THROMBOCONCENTRATE [Concomitant]
     Dosage: 2
     Dates: start: 20100820, end: 20100911
  8. FRESH FROZEN PLASMA [Concomitant]
     Dosage: 1
     Dates: start: 20100821, end: 20100914
  9. SUSPENSION OF ERITROCYTES FILTRATED [Concomitant]
     Dosage: 1
     Dates: start: 20100823, end: 20100914
  10. OMEPRASOL [Concomitant]
     Dosage: 40 MG, QD
     Dates: start: 20100816, end: 20100914

REACTIONS (2)
  - GINGIVAL BLEEDING [None]
  - TONGUE HAEMATOMA [None]
